FAERS Safety Report 6955895-4 (Version None)
Quarter: 2010Q3

REPORT INFORMATION
  Report Type: 
  Country: None (occurrence: None)
  Receive Date: 20100830
  Receipt Date: 20100817
  Transmission Date: 20110219
  Serious: Yes (Other)
  Sender: FDA-Public Use
  Company Number: ES-ELI_LILLY_AND_COMPANY-ES201008005282

PATIENT
  Sex: Female
  Weight: 61 kg

DRUGS (7)
  1. FORTEO [Suspect]
     Indication: OSTEOPOROSIS
     Dosage: 20 UG, DAILY (1/D)
     Route: 058
     Dates: start: 20100101
  2. ESERTIA [Concomitant]
     Indication: DEPRESSION
     Dosage: 20 MG, DAILY (1/D)
     Route: 048
     Dates: start: 20030101
  3. SINTROM [Concomitant]
     Indication: CEREBROVASCULAR ACCIDENT
     Dosage: 4 MG, DAILY (1/D)
     Route: 048
     Dates: start: 20030101
  4. PANTECTA [Concomitant]
     Indication: PROPHYLAXIS AGAINST GASTROINTESTINAL ULCER
     Dosage: 20 MG, DAILY (1/D)
     Route: 048
  5. DICLOFENACO                        /00372302/ [Concomitant]
     Indication: PAIN
     Dosage: UNK, UNKNOWN
     Route: 048
     Dates: end: 20100701
  6. ENANTYUM [Concomitant]
     Indication: PAIN
     Dosage: 12.5 MG, EVERY 8 HRS
     Route: 048
     Dates: start: 20100701, end: 20100801
  7. TARDYFERON [Concomitant]
     Indication: ANAEMIA

REACTIONS (6)
  - ANTICOAGULATION DRUG LEVEL ABOVE THERAPEUTIC [None]
  - CONTUSION [None]
  - DYSPNOEA [None]
  - OEDEMA PERIPHERAL [None]
  - PULMONARY HYPERTENSION [None]
  - THYROID NEOPLASM [None]
